FAERS Safety Report 4375543-X (Version None)
Quarter: 2004Q2

REPORT INFORMATION
  Report Type: 
  Country: None (occurrence: None)
  Receive Date: 20040610
  Receipt Date: 20040531
  Transmission Date: 20050107
  Serious: Yes (Death, Life-Threatening)
  Sender: FDA-Public Use
  Company Number: CA-JNJFOC-20040600552

PATIENT
  Sex: Male
  Weight: 100.4 kg

DRUGS (11)
  1. REMICADE [Suspect]
     Route: 042
  2. REMICADE [Suspect]
     Indication: EOSINOPHILIC FASCIITIS
     Route: 042
  3. PREDNISONE [Concomitant]
     Route: 049
  4. PRINIVIL [Concomitant]
     Indication: HYPERTENSION
     Route: 049
  5. FUROSEMIDE [Concomitant]
     Route: 049
  6. ALLOPURINOL [Concomitant]
     Route: 049
  7. FOSAMAX [Concomitant]
     Route: 049
  8. CARBOCAL [Concomitant]
     Route: 049
  9. CARBOCAL [Concomitant]
     Route: 049
  10. CARBOCAL [Concomitant]
     Route: 049
  11. TEMAZEPAM [Concomitant]
     Route: 049

REACTIONS (7)
  - BLASTOMYCOSIS [None]
  - DISEASE PROGRESSION [None]
  - FASCIITIS [None]
  - PNEUMONIA [None]
  - PULMONARY FIBROSIS [None]
  - SCLERODERMA [None]
  - THERAPY NON-RESPONDER [None]
